FAERS Safety Report 22145292 (Version 1)
Quarter: 2023Q1

REPORT INFORMATION
  Report Type: Spontaneous
  Country: FR (occurrence: FR)
  Receive Date: 20230328
  Receipt Date: 20230328
  Transmission Date: 20230418
  Serious: Yes (Other)
  Sender: FDA-Public Use
  Company Number: FR-UCBSA-2023015736

PATIENT
  Age: 58 Year
  Sex: Male

DRUGS (5)
  1. VIMPAT [Suspect]
     Active Substance: LACOSAMIDE
     Indication: Epilepsy
     Dosage: 150 MILLIGRAM
     Route: 048
     Dates: start: 20221222
  2. CYAMEMAZINE [Suspect]
     Active Substance: CYAMEMAZINE
     Indication: Product administration error
     Dosage: 100 MILLIGRAM
     Route: 048
     Dates: start: 20221222, end: 20221222
  3. ANAFRANIL [Suspect]
     Active Substance: CLOMIPRAMINE HYDROCHLORIDE
     Indication: Product administration error
     Dosage: 75 MILLIGRAM
     Route: 048
     Dates: start: 20221222, end: 20221222
  4. OXAZEPAM [Suspect]
     Active Substance: OXAZEPAM
     Indication: Product administration error
     Dosage: 50 MILLIGRAM
     Route: 048
     Dates: start: 20221222, end: 20221222
  5. TROPATEPINE [Suspect]
     Active Substance: TROPATEPINE
     Indication: Epilepsy
     Dosage: 10 MILLIGRAM
     Route: 048
     Dates: start: 20221222, end: 20221222

REACTIONS (4)
  - Product administration error [Recovered/Resolved]
  - Hypotension [Recovered/Resolved]
  - Condition aggravated [Recovering/Resolving]
  - Hypersomnia [Recovered/Resolved]

NARRATIVE: CASE EVENT DATE: 20221222
